FAERS Safety Report 11227690 (Version 1)
Quarter: 2015Q2

REPORT INFORMATION
  Report Type: Spontaneous
  Country: US (occurrence: None)
  Receive Date: 20150626
  Receipt Date: 20150626
  Transmission Date: 20150821
  Serious: Yes (Life-Threatening, Disabling)
  Sender: FDA-Public Use
  Company Number: None

PATIENT
  Age: 44 Year
  Sex: Male
  Weight: 105.69 kg

DRUGS (6)
  1. LANTUS SOLOSTAR [Suspect]
     Active Substance: INSULIN GLARGINE
     Indication: TYPE 1 DIABETES MELLITUS
     Dosage: 25 U/NIGHT
     Route: 058
     Dates: start: 20150401, end: 20150527
  2. VITAMIN K [Concomitant]
     Active Substance: PHYTONADIONE
  3. MULTIVITAMIN [Concomitant]
     Active Substance: VITAMINS
  4. CINNIMON [Concomitant]
  5. SAW PALMETTO BERRY [Concomitant]
  6. VITAMIN D [Concomitant]
     Active Substance: CHOLECALCIFEROL

REACTIONS (5)
  - Cold sweat [None]
  - Product quality issue [None]
  - Presyncope [None]
  - Blood glucose decreased [None]
  - Dizziness [None]

NARRATIVE: CASE EVENT DATE: 20150527
